FAERS Safety Report 6251579-9 (Version None)
Quarter: 2009Q2

REPORT INFORMATION
  Report Type: 
  Country: None (occurrence: None)
  Receive Date: 20090630
  Receipt Date: 20090625
  Transmission Date: 20091009
  Serious: Yes (Hospitalization, Other)
  Sender: FDA-Public Use
  Company Number: US-ELI_LILLY_AND_COMPANY-US200903004826

PATIENT
  Sex: Male

DRUGS (4)
  1. HUMALOG [Suspect]
  2. LANTUS [Concomitant]
  3. NOVOLOG [Concomitant]
  4. NPH [Concomitant]

REACTIONS (17)
  - APHASIA [None]
  - CAROTID ARTERY OCCLUSION [None]
  - CEREBROVASCULAR ACCIDENT [None]
  - CONVULSION [None]
  - FALL [None]
  - FIBULA FRACTURE [None]
  - FRACTURE DISPLACEMENT [None]
  - HEMIPARESIS [None]
  - HEMIPLEGIA [None]
  - IMPAIRED HEALING [None]
  - LEG AMPUTATION [None]
  - MONOPARESIS [None]
  - MUSCULAR WEAKNESS [None]
  - PAIN [None]
  - THROMBOSIS [None]
  - TIBIA FRACTURE [None]
  - TRANSIENT ISCHAEMIC ATTACK [None]
